FAERS Safety Report 5840469-9 (Version None)
Quarter: 2008Q3

REPORT INFORMATION
  Report Type: 
  Country: None (occurrence: None)
  Receive Date: 20080807
  Receipt Date: 20080807
  Transmission Date: 20090109
  Serious: Yes (Other)
  Sender: FDA-Public Use
  Company Number: None

PATIENT
  Age: 48 Year
  Sex: Female
  Weight: 88.4514 kg

DRUGS (1)
  1. PROTONIX [Suspect]
     Indication: GASTRITIS
     Dosage: 40 MG ONCE PER DAY PO
     Route: 048
     Dates: start: 20080102, end: 20080121

REACTIONS (7)
  - ASTHENIA [None]
  - CONFUSIONAL STATE [None]
  - DISTURBANCE IN ATTENTION [None]
  - DYSARTHRIA [None]
  - MYALGIA [None]
  - MYOPATHY [None]
  - THINKING ABNORMAL [None]
